FAERS Safety Report 5898647-9 (Version None)
Quarter: 2008Q3

REPORT INFORMATION
  Report Type: 
  Country: None (occurrence: None)
  Receive Date: 20080925
  Receipt Date: 20080314
  Transmission Date: 20090109
  Serious: Yes (Other)
  Sender: FDA-Public Use
  Company Number: A0715525A

PATIENT
  Sex: Female

DRUGS (3)
  1. WELLBUTRIN XL [Suspect]
     Indication: DRUG USE FOR UNKNOWN INDICATION
     Dosage: 300MG UNKNOWN
     Route: 048
  2. PROVIGIL [Concomitant]
  3. UNSPECIFIED MEDICATION [Concomitant]

REACTIONS (1)
  - HEPATOTOXICITY [None]
